FAERS Safety Report 8012853-9 (Version None)
Quarter: 2011Q4

REPORT INFORMATION
  Report Type: 
  Country: None (occurrence: None)
  Receive Date: 20111229
  Receipt Date: 20111219
  Transmission Date: 20120403
  Serious: Yes (Other)
  Sender: FDA-Public Use
  Company Number: TR-BRISTOL-MYERS SQUIBB COMPANY-16305104

PATIENT
  Age: 9 Year
  Sex: Female
  Weight: 22 kg

DRUGS (5)
  1. BUSULFAN [Suspect]
  2. METHOTREXATE [Suspect]
  3. CYCLOSPORINE [Suspect]
  4. CYCLOPHOSPHAMIDE [Suspect]
  5. METHYLPREDNISOLONE ACETATE [Suspect]

REACTIONS (2)
  - PRIMARY ADRENAL INSUFFICIENCY [None]
  - CHRONIC GRAFT VERSUS HOST DISEASE [None]
